FAERS Safety Report 18573041 (Version 1)
Quarter: 2020Q4

REPORT INFORMATION
  Report Type: Spontaneous
  Country: US (occurrence: US)
  Receive Date: 20201203
  Receipt Date: 20201203
  Transmission Date: 20210114
  Serious: No
  Sender: FDA-Public Use
  Company Number: US-ALLERGAN-2009195US

PATIENT
  Age: 68 Year
  Sex: Male

DRUGS (10)
  1. ATORVASTATIN CALCIUM. [Concomitant]
     Active Substance: ATORVASTATIN CALCIUM
  2. AMLODIPINE [Concomitant]
     Active Substance: AMLODIPINE BESYLATE
  3. DALVANCE [Suspect]
     Active Substance: DALBAVANCIN
     Indication: OSTEOMYELITIS
     Dosage: 1500 MG, SINGLE
     Route: 042
     Dates: start: 20200218, end: 20200218
  4. VASCEPA [Concomitant]
     Active Substance: ICOSAPENT ETHYL
  5. OLMESARTAN [Concomitant]
     Active Substance: OLMESARTAN
  6. METFORMIN HCL [Concomitant]
     Active Substance: METFORMIN HYDROCHLORIDE
  7. AUGMENTIN [Concomitant]
     Active Substance: AMOXICILLIN\CLAVULANATE POTASSIUM
  8. DALVANCE [Suspect]
     Active Substance: DALBAVANCIN
     Dosage: 1500 MG, SINGLE
     Route: 042
     Dates: start: 20200211, end: 20200211
  9. GABAPENTIN. [Concomitant]
     Active Substance: GABAPENTIN
  10. GLIPIZIDE. [Concomitant]
     Active Substance: GLIPIZIDE

REACTIONS (5)
  - Nausea [Recovered/Resolved]
  - Off label use [Unknown]
  - Orthostatic hypertension [Recovered/Resolved]
  - Loss of consciousness [Recovered/Resolved]
  - Vomiting [Recovered/Resolved]

NARRATIVE: CASE EVENT DATE: 20200218
